FAERS Safety Report 25628241 (Version 1)
Quarter: 2025Q3

REPORT INFORMATION
  Report Type: Spontaneous
  Country: GB (occurrence: GB)
  Receive Date: 20250731
  Receipt Date: 20250731
  Transmission Date: 20251020
  Serious: Yes (Other)
  Sender: ELI LILLY AND COMPANY
  Company Number: GB-MHRA-WEBRADR-202506172021208660-WJRNL

PATIENT
  Age: 60 Year
  Sex: Male
  Weight: 196 kg

DRUGS (1)
  1. MOUNJARO [Suspect]
     Active Substance: TIRZEPATIDE
     Indication: Weight control
     Route: 058
     Dates: start: 20250201

REACTIONS (3)
  - Urinary tract infection [Recovered/Resolved with Sequelae]
  - Atrial fibrillation [Unknown]
  - Constipation [Unknown]

NARRATIVE: CASE EVENT DATE: 20250401
